FAERS Safety Report 21124863 (Version 1)
Quarter: 2022Q3

REPORT INFORMATION
  Report Type: Spontaneous
  Country: TW (occurrence: None)
  Receive Date: 20220725
  Receipt Date: 20220725
  Transmission Date: 20221026
  Serious: Yes (Other)
  Sender: FDA-Public Use
  Company Number: TW-Allegis Pharmaceuticals, LLC-APL202207-000042

PATIENT
  Age: 83 Year
  Sex: Male
  Weight: 60 kg

DRUGS (8)
  1. NITROGLYCERIN [Suspect]
     Active Substance: NITROGLYCERIN
     Indication: Pulmonary oedema
     Route: 060
  2. FUROSEMIDE [Suspect]
     Active Substance: FUROSEMIDE
     Indication: Hypervolaemia
     Route: 042
  3. FUROSEMIDE [Suspect]
     Active Substance: FUROSEMIDE
     Indication: Pulmonary oedema
  4. BUPIVACAINE [Concomitant]
     Active Substance: BUPIVACAINE
     Indication: Spinal anaesthesia
     Route: 037
  5. FENTANYL [Concomitant]
     Active Substance: FENTANYL
     Indication: Spinal anaesthesia
     Route: 037
  6. FENTANYL [Concomitant]
     Active Substance: FENTANYL
     Route: 042
  7. MIDAZOLAM [Concomitant]
     Active Substance: MIDAZOLAM
     Indication: Cardio-respiratory distress
     Route: 042
  8. DIGOXIN [Concomitant]
     Active Substance: DIGOXIN
     Indication: Atrial fibrillation
     Route: 042

REACTIONS (7)
  - Depressed level of consciousness [Recovered/Resolved]
  - Atrial fibrillation [Recovered/Resolved]
  - Myocardial injury [Unknown]
  - Hypoxia [Recovering/Resolving]
  - Condition aggravated [Recovering/Resolving]
  - Hypotension [Recovered/Resolved]
  - Product use in unapproved indication [Unknown]
